FAERS Safety Report 7314480-5 (Version None)
Quarter: 2011Q1

REPORT INFORMATION
  Report Type: 
  Country: None (occurrence: None)
  Receive Date: 20110225
  Receipt Date: 20100923
  Transmission Date: 20110831
  Serious: No
  Sender: FDA-Public Use
  Company Number: US-MYLANLABS-2010S1016636

PATIENT
  Age: 17 Year
  Sex: Male
  Weight: 64 kg

DRUGS (4)
  1. AMNESTEEM [Suspect]
     Route: 048
     Dates: start: 20100426, end: 20100830
  2. AMNESTEEM [Suspect]
     Indication: ACNE CYSTIC
     Route: 048
     Dates: start: 20100426, end: 20100830
  3. CLARAVIS [Suspect]
     Indication: ACNE CYSTIC
     Route: 048
  4. CLARAVIS [Suspect]
     Route: 048

REACTIONS (1)
  - PARONYCHIA [None]
